FAERS Safety Report 6469001-6 (Version None)
Quarter: 2009Q4

REPORT INFORMATION
  Report Type: 
  Country: None (occurrence: None)
  Receive Date: 20091203
  Receipt Date: 20091123
  Transmission Date: 20100525
  Serious: Yes (Other)
  Sender: FDA-Public Use
  Company Number: PHHY2009BE51727

PATIENT
  Sex: Male

DRUGS (3)
  1. GLEEVEC [Suspect]
     Indication: GASTROINTESTINAL STROMAL TUMOUR
     Route: 048
  2. GLEEVEC [Suspect]
     Dosage: UNK
     Dates: start: 20090101
  3. SUTENT [Concomitant]

REACTIONS (3)
  - NEOPLASM RECURRENCE [None]
  - ORBITAL OEDEMA [None]
  - STRABISMUS [None]
